FAERS Safety Report 7426957-2 (Version None)
Quarter: 2011Q2

REPORT INFORMATION
  Report Type: 
  Country: None (occurrence: None)
  Receive Date: 20110420
  Receipt Date: 20110321
  Transmission Date: 20111010
  Serious: No
  Sender: FDA-Public Use
  Company Number: US-BAYER-2011-026676

PATIENT
  Sex: Female
  Weight: 73 kg

DRUGS (4)
  1. THYROID TAB [Concomitant]
     Dosage: UNK
     Route: 048
  2. EYE DROPS [Concomitant]
     Dosage: UNK
     Route: 047
  3. ALEVE (CAPLET) [Suspect]
     Indication: ANALGESIC THERAPY
     Dosage: 2 DF, PRN
     Route: 048
     Dates: start: 20100901
  4. VITAMINS NOS [Concomitant]
     Dosage: UNK
     Route: 048

REACTIONS (1)
  - FIBROMYALGIA [None]
